FAERS Safety Report 20220352 (Version 1)
Quarter: 2021Q4

REPORT INFORMATION
  Report Type: Report from Study
  Country: PR (occurrence: PR)
  Receive Date: 20211223
  Receipt Date: 20211223
  Transmission Date: 20220303
  Serious: Yes (Other)
  Sender: FDA-Public Use
  Company Number: PR-ABBVIE-21K-131-4208499-00

PATIENT
  Sex: Female
  Weight: 82.628 kg

DRUGS (4)
  1. HUMIRA [Suspect]
     Active Substance: ADALIMUMAB
     Indication: Psoriatic arthropathy
     Dosage: 40 MG / 0.4 ML
     Route: 058
  2. HUMIRA [Suspect]
     Active Substance: ADALIMUMAB
     Indication: Psoriatic arthropathy
     Dosage: 40 MG / 0.8 ML
     Route: 058
     Dates: start: 20180706
  3. ELASOMERAN [Concomitant]
     Active Substance: ELASOMERAN
     Indication: COVID-19
     Dosage: 1ST DOSE
     Route: 030
     Dates: start: 20210525, end: 20210525
  4. ELASOMERAN [Concomitant]
     Active Substance: ELASOMERAN
     Dosage: 2ND DOSE
     Route: 030
     Dates: start: 20210625, end: 20210625

REACTIONS (1)
  - Inguinal hernia [Recovered/Resolved]
